FAERS Safety Report 22224888 (Version 1)
Quarter: 2023Q2

REPORT INFORMATION
  Report Type: Spontaneous
  Country: US (occurrence: None)
  Receive Date: 20230414
  Receipt Date: 20230414
  Transmission Date: 20230722
  Serious: Yes (Hospitalization)
  Sender: FDA-Public Use
  Company Number: None

PATIENT
  Sex: Female

DRUGS (3)
  1. ALENDRONATE SODIUM [Suspect]
     Active Substance: ALENDRONATE SODIUM
     Indication: HIV infection
     Dosage: FREQUENCY : WEEKLY;?
     Route: 048
     Dates: start: 201912
  2. PRAVASTATIN SODIUM [Suspect]
     Active Substance: PRAVASTATIN SODIUM
     Indication: HIV infection
     Dosage: FREQUENCY : DAILY;?
     Route: 048
     Dates: start: 202203
  3. AZITHROMYCIN [Concomitant]
     Dosage: FREQUENCY: TAKE 2 TABLETS BY MOUTH ON DAY 1, THEN 1 TABLET DAILY FOR 4 DAYS THEREAFTER.
     Route: 048

REACTIONS (1)
  - Depression [None]
